FAERS Safety Report 8279586-5 (Version None)
Quarter: 2012Q2

REPORT INFORMATION
  Report Type: 
  Country: None (occurrence: None)
  Receive Date: 20120412
  Receipt Date: 20110724
  Transmission Date: 20120825
  Serious: No
  Sender: FDA-Public Use
  Company Number: US-ASTRAZENECA-2011SE44256

PATIENT
  Age: 85 Year
  Sex: Male
  Weight: 72.6 kg

DRUGS (3)
  1. MEDICATION FOR HIGH CHOLESTEROL [Concomitant]
     Indication: HYPERCHOLESTEROLAEMIA
  2. MEDICATION FOR HIGH BLOOD PRESSURE [Concomitant]
     Indication: HYPERTENSION
  3. NEXIUM [Suspect]
     Indication: DYSPEPSIA
     Route: 048
     Dates: start: 20110719

REACTIONS (1)
  - FAECES DISCOLOURED [None]
